FAERS Safety Report 9442463 (Version 2)
Quarter: 2014Q3

REPORT INFORMATION
  Report Type: Spontaneous
  Country: US (occurrence: US)
  Receive Date: 20130806
  Receipt Date: 20140929
  Transmission Date: 20150326
  Serious: Yes (Hospitalization, Other)
  Sender: FDA-Public Use
  Company Number: US-PFIZER INC-2013227439

PATIENT
  Age: 46 Year
  Sex: Female

DRUGS (6)
  1. RAPAMUNE [Suspect]
     Active Substance: SIROLIMUS
     Indication: IMMUNOSUPPRESSION
     Dosage: UNK
     Route: 048
     Dates: start: 20031113, end: 20070604
  2. RAPAMUNE [Suspect]
     Active Substance: SIROLIMUS
     Dosage: 1 MG TABLETS, 8 TABLETS DAILY
     Route: 048
     Dates: start: 20051216
  3. PREDNISONE. [Concomitant]
     Active Substance: PREDNISONE
     Indication: IMMUNOSUPPRESSION
     Dosage: 5 MG, 1X/DAY
     Route: 048
  4. CELLCEPT [Concomitant]
     Active Substance: MYCOPHENOLATE MOFETIL\MYCOPHENOLATE MOFETIL HYDROCHLORIDE
     Indication: IMMUNOSUPPRESSION
     Dosage: 750 MG, 2X/DAY
     Route: 048
  5. RAPAMUNE [Suspect]
     Active Substance: SIROLIMUS
     Dosage: 1 MG TABLETS, 6 TABLETS EVERY DAY
     Route: 048
     Dates: start: 20040329, end: 20050524
  6. RAPAMUNE [Suspect]
     Active Substance: SIROLIMUS
     Dosage: 1 MG TABLETS, 7 TABLETS DAILY
     Route: 048
     Dates: start: 20060118

REACTIONS (3)
  - Interstitial lung disease [Unknown]
  - Pulmonary hypertension [Unknown]
  - Pneumonitis [Unknown]

NARRATIVE: CASE EVENT DATE: 20061129
